FAERS Safety Report 18950566 (Version 1)
Quarter: 2021Q1

REPORT INFORMATION
  Report Type: Spontaneous
  Country: US (occurrence: US)
  Receive Date: 20210228
  Receipt Date: 20210228
  Transmission Date: 20210420
  Serious: No
  Sender: FDA-Public Use
  Company Number: US-ROCHE-2669817

PATIENT
  Age: 68 Year
  Sex: Male

DRUGS (17)
  1. GLIPIZIDE. [Concomitant]
     Active Substance: GLIPIZIDE
  2. SERTRALINE [Concomitant]
     Active Substance: SERTRALINE HYDROCHLORIDE
  3. CRESTOR [Concomitant]
     Active Substance: ROSUVASTATIN CALCIUM
  4. DOXYCYCLINE HYDROCHLORIDE [Concomitant]
     Active Substance: DOXYCYCLINE HYDROCHLORIDE
  5. LAMOTRIGINE. [Concomitant]
     Active Substance: LAMOTRIGINE
  6. PREDNISONE. [Concomitant]
     Active Substance: PREDNISONE
  7. CARBAMAZEPINE. [Concomitant]
     Active Substance: CARBAMAZEPINE
  8. METRONIDAZOLE. [Concomitant]
     Active Substance: METRONIDAZOLE
     Dosage: CRE 0.75%
  9. MONTELUKAST [Concomitant]
     Active Substance: MONTELUKAST SODIUM
  10. RANITIDINE. [Concomitant]
     Active Substance: RANITIDINE
  11. XOLAIR [Suspect]
     Active Substance: OMALIZUMAB
     Indication: URTICARIA
     Dosage: XOLAIR 150 MG VIAL
     Route: 058
  12. JANUVIA [Concomitant]
     Active Substance: SITAGLIPTIN PHOSPHATE
  13. LEVOCETIRIZINE [Concomitant]
     Active Substance: LEVOCETIRIZINE
  14. PANTOPRAZOLE [Concomitant]
     Active Substance: PANTOPRAZOLE
  15. CLONAZEPAM. [Concomitant]
     Active Substance: CLONAZEPAM
  16. FLUOCINONIDE. [Concomitant]
     Active Substance: FLUOCINONIDE
     Dosage: CRE 0.05%
  17. TRIAMCINOLONE [Concomitant]
     Active Substance: TRIAMCINOLONE
     Dosage: CRE 0.1%

REACTIONS (1)
  - Illness [Unknown]

NARRATIVE: CASE EVENT DATE: 202008
